FAERS Safety Report 4326174-9 (Version None)
Quarter: 2004Q1

REPORT INFORMATION
  Report Type: 
  Country: None (occurrence: None)
  Receive Date: 20040324
  Receipt Date: 20040316
  Transmission Date: 20041129
  Serious: Yes (Life-Threatening, Congenital Anomaly)
  Sender: FDA-Public Use
  Company Number: 2004CG00541

PATIENT
  Sex: Female
  Weight: 3.6 kg

DRUGS (1)
  1. MOPRAL [Suspect]
     Dosage: 10 MG QD TPL
     Route: 064
     Dates: start: 20010608, end: 20020318

REACTIONS (4)
  - CONGENITAL ATRIAL SEPTAL DEFECT [None]
  - EXTRASYSTOLES [None]
  - MATERNAL DRUGS AFFECTING FOETUS [None]
  - NEONATAL DISORDER [None]
